FAERS Safety Report 7691075-5 (Version None)
Quarter: 2011Q3

REPORT INFORMATION
  Report Type: 
  Country: None (occurrence: None)
  Receive Date: 20110815
  Receipt Date: 20110801
  Transmission Date: 20111222
  Serious: Yes (Hospitalization)
  Sender: FDA-Public Use
  Company Number: TCI2011A04290

PATIENT
  Sex: Male

DRUGS (8)
  1. PLETAL [Concomitant]
  2. ACTOS [Suspect]
     Indication: DIABETES MELLITUS
     Dosage: 15 MG (15 MG 1 D) PER ORAL
     Route: 048
  3. PLAVIX [Concomitant]
  4. NATEGLINIDE [Concomitant]
  5. BLOPRESS (CANDESARTAN CILEXETIL) [Concomitant]
  6. NORVASC [Concomitant]
  7. BISOPROLOL FUMARATE [Concomitant]
  8. ASPIRIN [Concomitant]

REACTIONS (2)
  - BLADDER NEOPLASM [None]
  - HAEMATURIA [None]
